FAERS Safety Report 6185645-3 (Version None)
Quarter: 2009Q2

REPORT INFORMATION
  Report Type: 
  Country: None (occurrence: None)
  Receive Date: 20090507
  Receipt Date: 20090424
  Transmission Date: 20091009
  Serious: No
  Sender: FDA-Public Use
  Company Number: 2009-192469-NL

PATIENT
  Sex: Female

DRUGS (1)
  1. ETONOGESTREL (BATCH #: 779306/852513) [Suspect]
     Dosage: DF
     Dates: start: 20060516, end: 20090218

REACTIONS (2)
  - IMPLANT SITE CYST [None]
  - INJECTED LIMB MOBILITY DECREASED [None]
